FAERS Safety Report 5535735-0 (Version None)
Quarter: 2007Q4

REPORT INFORMATION
  Report Type: 
  Country: None (occurrence: None)
  Receive Date: 20071204
  Receipt Date: 20071204
  Transmission Date: 20080405
  Serious: Yes (Hospitalization)
  Sender: FDA-Public Use
  Company Number: None

PATIENT
  Sex: Male
  Weight: 55.7924 kg

DRUGS (6)
  1. HYDROCHLOROTHIAZIDE [Suspect]
     Indication: HYPERTENSION
     Dosage: 25MG QD PO
     Route: 048
     Dates: start: 20070907, end: 20071025
  2. APIPRAZOLE [Concomitant]
  3. ASPIRIN [Concomitant]
  4. BENAZEPRIL HYDROCHLORIDE [Concomitant]
  5. PHENOBARBITAL TAB [Concomitant]
  6. LOVASTATIN [Concomitant]

REACTIONS (3)
  - HYPONATRAEMIA [None]
  - HYPOTENSION [None]
  - LOSS OF CONSCIOUSNESS [None]
